FAERS Safety Report 4529755-2 (Version None)
Quarter: 2004Q4

REPORT INFORMATION
  Report Type: 
  Country: None (occurrence: None)
  Receive Date: 20041126
  Receipt Date: 20040813
  Transmission Date: 20050328
  Serious: No
  Sender: FDA-Public Use
  Company Number: SU-2004-002608

PATIENT
  Age: 65 Year
  Sex: Male
  Weight: 73.4827 kg

DRUGS (2)
  1. BENICAR [Suspect]
     Indication: HYPERTENSION
     Dosage: 30 MG QD PO
     Route: 048
     Dates: start: 20020101
  2. LIPITOR [Concomitant]

REACTIONS (1)
  - ERECTILE DYSFUNCTION [None]
